FAERS Safety Report 18468772 (Version 1)
Quarter: 2020Q4

REPORT INFORMATION
  Report Type: Spontaneous
  Country: GB (occurrence: GB)
  Receive Date: 20201105
  Receipt Date: 20201105
  Transmission Date: 20210114
  Serious: Yes (Other)
  Sender: FDA-Public Use
  Company Number: GB-PERRIGO-20GB015377

PATIENT

DRUGS (33)
  1. BISOPROLOL [Concomitant]
     Active Substance: BISOPROLOL
     Dosage: UNK
     Dates: start: 20200930
  2. CODEINE PHOSPHATE [Concomitant]
     Active Substance: CODEINE PHOSPHATE
     Dosage: 1-2
     Dates: start: 20200930
  3. RABEPRAZOLE [Concomitant]
     Active Substance: RABEPRAZOLE
     Dates: start: 20201005
  4. ACIDEX                             /01521901/ [Concomitant]
     Active Substance: CALCIUM CARBONATE\SODIUM ALGINATE\SODIUM BICARBONATE
     Dates: start: 20201003
  5. PREGABALIN. [Concomitant]
     Active Substance: PREGABALIN
     Dosage: VARIABLE DOSE
     Dates: start: 20200930
  6. POTASSIUM CHLORIDE. [Concomitant]
     Active Substance: POTASSIUM CHLORIDE
     Dates: start: 20201001
  7. ZEROBASE                           /00103901/ [Concomitant]
     Dosage: 1 APPLICATION(S) UNCHECKED UNITS
     Dates: start: 20201003
  8. PREDNISOLONE. [Concomitant]
     Active Substance: PREDNISOLONE
     Dosage: 6 UNK
     Dates: start: 20200930
  9. CYCLIZINE [Concomitant]
     Active Substance: CYCLIZINE
     Dates: start: 20200930, end: 20201005
  10. AMITRIPTYLINE HYDROCHLORIDE. [Concomitant]
     Active Substance: AMITRIPTYLINE HYDROCHLORIDE
     Dosage: 3 UNK
     Dates: start: 20200930
  11. ISOSORBIDE MONONITRATE. [Concomitant]
     Active Substance: ISOSORBIDE MONONITRATE
     Dosage: 1 UNK
     Dates: start: 20201006
  12. MEROPENEM. [Concomitant]
     Active Substance: MEROPENEM
     Dates: start: 20201001
  13. PIPERACILLIN. [Concomitant]
     Active Substance: PIPERACILLIN SODIUM
     Dates: start: 20200930, end: 20201001
  14. PHENOXYMETHYLPENICILLIN [Concomitant]
     Active Substance: PENICILLIN V
     Dates: start: 20201005
  15. RANITIDINE HYDROCHLORIDE. [Suspect]
     Active Substance: RANITIDINE HYDROCHLORIDE
     Indication: GASTROOESOPHAGEAL REFLUX DISEASE
     Route: 065
     Dates: start: 20201002
  16. FINASTERIDE. [Concomitant]
     Active Substance: FINASTERIDE
     Dosage: 1 UNK
     Dates: start: 20200930
  17. GLYCERYL TRINITRATE [Concomitant]
     Active Substance: NITROGLYCERIN
     Dosage: 1-2 SPRAY
     Dates: start: 20200930
  18. ATORVASTATIN [Concomitant]
     Active Substance: ATORVASTATIN
     Dosage: 1 UNK
     Dates: start: 20200930
  19. AMOXICILLIN. [Concomitant]
     Active Substance: AMOXICILLIN
     Dates: start: 20200930, end: 20200930
  20. SODIUM CHLORIDE. [Concomitant]
     Active Substance: SODIUM CHLORIDE
     Dates: start: 20200930
  21. NOVOMIX [Concomitant]
     Active Substance: INSULIN ASPART
     Dates: start: 20201003
  22. PARACETAMOL [Concomitant]
     Active Substance: ACETAMINOPHEN
     Dosage: 1-2
     Dates: start: 20200930
  23. FUROSEMIDE. [Concomitant]
     Active Substance: FUROSEMIDE
     Dosage: VARIABLE DOSE
     Dates: start: 20200930
  24. SALBUTAMOL [Concomitant]
     Active Substance: ALBUTEROL
     Dates: start: 20200930
  25. MACROGOL [Concomitant]
     Active Substance: POLYETHYLENE GLYCOLS
     Dosage: 1-2 SACHET
     Dates: start: 20201005
  26. APIXABAN [Concomitant]
     Active Substance: APIXABAN
     Dosage: 1 UNK
     Dates: start: 20200930
  27. GLUCOSE [Concomitant]
     Active Substance: DEXTROSE
     Dates: start: 20201001
  28. ALFACALCIDOL [Concomitant]
     Active Substance: ALFACALCIDOL
     Dosage: 1 UNK
     Dates: start: 20201006
  29. SODIUM LACTATE. [Concomitant]
     Active Substance: SODIUM LACTATE
     Dates: start: 20200930
  30. HYDROXOCOBALAMIN [Concomitant]
     Active Substance: HYDROXOCOBALAMIN
     Dates: start: 20200930, end: 20200930
  31. OXYGEN. [Concomitant]
     Active Substance: OXYGEN
     Dosage: CONTINUOUS 1-10 LITRES/MINUTE
     Dates: start: 20201002
  32. RANITIDINE. [Concomitant]
     Active Substance: RANITIDINE
     Dates: start: 20201002, end: 20201005
  33. TAMSULOSIN HYDROCHLORIDE. [Concomitant]
     Active Substance: TAMSULOSIN HYDROCHLORIDE
     Dosage: 1 UNK
     Dates: start: 20200930

REACTIONS (2)
  - Hallucination, visual [Recovered/Resolved]
  - Delirium [Recovered/Resolved]

NARRATIVE: CASE EVENT DATE: 20201006
